FAERS Safety Report 6232332-9 (Version None)
Quarter: 2009Q2

REPORT INFORMATION
  Report Type: 
  Country: None (occurrence: None)
  Receive Date: 20090617
  Receipt Date: 20090610
  Transmission Date: 20091009
  Serious: Yes (Other)
  Sender: FDA-Public Use
  Company Number: JP-JNJFOC-20090403667

PATIENT
  Sex: Male
  Weight: 63 kg

DRUGS (5)
  1. ITRIZOLE [Suspect]
     Route: 048
  2. ITRIZOLE [Suspect]
     Indication: ONYCHOMYCOSIS
     Route: 048
  3. FLIVAS [Concomitant]
     Indication: BENIGN PROSTATIC HYPERPLASIA
     Route: 048
  4. DIOVAN [Concomitant]
     Indication: HYPERTENSION
     Route: 048
  5. CARTEOLOL HYDROCHLORIDE [Concomitant]
     Indication: HYPERTENSION
     Route: 048

REACTIONS (7)
  - BLOOD CHOLESTEROL ABNORMAL [None]
  - CHROMATURIA [None]
  - ELECTROLYTE IMBALANCE [None]
  - FULL BLOOD COUNT ABNORMAL [None]
  - HEPATIC FUNCTION ABNORMAL [None]
  - JAUNDICE [None]
  - RENAL FUNCTION TEST ABNORMAL [None]
